FAERS Safety Report 8883618 (Version 1)
Quarter: 2012Q4

REPORT INFORMATION
  Report Type: 
  Country: US (occurrence: US)
  Receive Date: 20121102
  Receipt Date: 20121102
  Transmission Date: 20130627
  Serious: No
  Sender: FDA-Public Use
  Company Number: US-ASTRAZENECA-2012SE01508

PATIENT
  Age: 67 Year
  Sex: Female

DRUGS (11)
  1. CRESTOR [Suspect]
     Indication: BLOOD CHOLESTEROL INCREASED
     Route: 048
     Dates: start: 201112, end: 201112
  2. DALIRESP [Interacting]
     Indication: CHRONIC OBSTRUCTIVE PULMONARY DISEASE
     Route: 048
     Dates: start: 201111
  3. METFORMIN [Concomitant]
  4. CELEBREX [Concomitant]
  5. OMEPRAZOLE [Concomitant]
  6. PAXIL [Concomitant]
  7. LISINOPRIL [Concomitant]
  8. SIMVASTATIN [Concomitant]
  9. DOXAZOSIN [Concomitant]
  10. ASPIRIN [Concomitant]
  11. FISH OIL [Concomitant]

REACTIONS (2)
  - Alopecia [Recovering/Resolving]
  - Drug interaction [Recovering/Resolving]
